FAERS Safety Report 5096624-1 (Version None)
Quarter: 2006Q3

REPORT INFORMATION
  Report Type: 
  Country: None (occurrence: None)
  Receive Date: 20060830
  Receipt Date: 20060821
  Transmission Date: 20061208
  Serious: Yes (Other)
  Sender: FDA-Public Use
  Company Number: CAWYE302220JUL06

PATIENT
  Age: 30 Year
  Sex: Male

DRUGS (3)
  1. EFFEXOR XR [Suspect]
     Indication: DEPRESSION
     Dosage: 150 MG OD ORAL
     Route: 048
     Dates: start: 20051108, end: 20060706
  2. TYLENOL W/ CODEINE NO. 3 [Suspect]
     Indication: BACK PAIN
     Dosage: 1 OR 2 TABLET(S) EVERY 4 HOURS AS NEEDED ORAL
     Route: 048
     Dates: start: 20060509
  3. MIRTAZAPINE [Concomitant]

REACTIONS (4)
  - ANXIETY [None]
  - DRUG INTERACTION [None]
  - DRUG WITHDRAWAL SYNDROME [None]
  - PANIC ATTACK [None]
